FAERS Safety Report 5712027-8 (Version None)
Quarter: 2008Q2

REPORT INFORMATION
  Report Type: 
  Country: None (occurrence: None)
  Receive Date: 20080417
  Receipt Date: 20080403
  Transmission Date: 20081010
  Serious: Yes (Disabling)
  Sender: FDA-Public Use
  Company Number: 2008000790

PATIENT
  Age: 50 Year
  Sex: Female

DRUGS (2)
  1. TARCEVA [Suspect]
     Indication: LUNG ADENOCARCINOMA METASTATIC
     Dosage: (150 MG,QD),ORAL
     Route: 048
     Dates: start: 20070112, end: 20080314
  2. DELTA-CORTEF [Concomitant]

REACTIONS (5)
  - AXONAL NEUROPATHY [None]
  - DIPLEGIA [None]
  - METASTASES TO MENINGES [None]
  - PARAESTHESIA [None]
  - PARANEOPLASTIC SYNDROME [None]
